FAERS Safety Report 20407096 (Version 1)
Quarter: 2022Q1

REPORT INFORMATION
  Report Type: Spontaneous
  Country: US (occurrence: None)
  Receive Date: 20220131
  Receipt Date: 20220131
  Transmission Date: 20220423
  Serious: Yes (Other)
  Sender: FDA-Public Use
  Company Number: None

PATIENT

DRUGS (1)
  1. NALOXONE [Suspect]
     Active Substance: NALOXONE
     Route: 042

REACTIONS (3)
  - Device issue [None]
  - Haemorrhage [None]
  - Injury associated with device [None]

NARRATIVE: CASE EVENT DATE: 20220131
